FAERS Safety Report 5676575-1 (Version None)
Quarter: 2008Q1

REPORT INFORMATION
  Report Type: 
  Country: None (occurrence: None)
  Receive Date: 20080318
  Receipt Date: 20080311
  Transmission Date: 20080703
  Serious: Yes (Hospitalization)
  Sender: FDA-Public Use
  Company Number: 2007SP024327

PATIENT
  Age: 73 Year
  Sex: Female

DRUGS (18)
  1. TEMODAL [Suspect]
     Indication: GLIOBLASTOMA
     Dosage: 150 MG/M2 QD PO ; 340 MG QD PO ; 255 MG QD PO ; PO
     Route: 048
     Dates: start: 20071030, end: 20071103
  2. TEMODAL [Suspect]
     Indication: GLIOBLASTOMA
     Dosage: 150 MG/M2 QD PO ; 340 MG QD PO ; 255 MG QD PO ; PO
     Route: 048
     Dates: start: 20071215, end: 20071219
  3. TEMODAL [Suspect]
     Indication: GLIOBLASTOMA
     Dosage: 150 MG/M2 QD PO ; 340 MG QD PO ; 255 MG QD PO ; PO
     Route: 048
     Dates: start: 20070928
  4. TEMODAL [Suspect]
     Indication: GLIOBLASTOMA
     Dosage: 150 MG/M2 QD PO ; 340 MG QD PO ; 255 MG QD PO ; PO
     Route: 048
     Dates: start: 20080128
  5. LEVOTHYROXINE SODIUM [Concomitant]
  6. PANTOPRAZOLE SODIUM [Concomitant]
  7. RYTHMOL [Concomitant]
  8. INDAPAMIDE [Concomitant]
  9. TANAKAN [Concomitant]
  10. ZOPICLONE [Concomitant]
  11. DIAMICRON [Concomitant]
  12. KARDEGIC [Concomitant]
  13. ACTOS [Concomitant]
  14. TARDYFERON [Concomitant]
  15. NORFLOXACIN [Concomitant]
  16. ACETAMINOPHEN [Concomitant]
  17. METOCLOPRAMIDE [Concomitant]
  18. FORLAX [Concomitant]

REACTIONS (7)
  - FATIGUE [None]
  - FEBRILE BONE MARROW APLASIA [None]
  - HAEMATOTOXICITY [None]
  - HYPOKALAEMIA [None]
  - MOUTH HAEMORRHAGE [None]
  - OROPHARYNGEAL BLISTERING [None]
  - PURPURA [None]
